FAERS Safety Report 16661588 (Version 1)
Quarter: 2019Q3

REPORT INFORMATION
  Report Type: Spontaneous
  Country: US (occurrence: US)
  Receive Date: 20190802
  Receipt Date: 20190802
  Transmission Date: 20191004
  Serious: Yes (Other)
  Sender: FDA-Public Use
  Company Number: US-ASTRAZENECA-2019SF08966

PATIENT
  Age: 23612 Day
  Sex: Male

DRUGS (1)
  1. BRILINTA [Suspect]
     Active Substance: TICAGRELOR
     Indication: STENT PLACEMENT
     Route: 048
     Dates: start: 201903

REACTIONS (3)
  - Fall [Unknown]
  - Rib fracture [Unknown]
  - Pain [Unknown]

NARRATIVE: CASE EVENT DATE: 20190726
